FAERS Safety Report 4667865-X (Version None)
Quarter: 2005Q2

REPORT INFORMATION
  Report Type: 
  Country: None (occurrence: None)
  Receive Date: 20050520
  Receipt Date: 20050303
  Transmission Date: 20051028
  Serious: Yes (Hospitalization)
  Sender: FDA-Public Use
  Company Number: JP-ROCHE-397832

PATIENT
  Age: 24 Year
  Sex: Male

DRUGS (4)
  1. TAMIFLU [Suspect]
     Route: 048
     Dates: start: 20050226, end: 20050226
  2. TAMIFLU [Suspect]
     Route: 048
     Dates: start: 20050227, end: 20050228
  3. VOLTAREN [Suspect]
     Indication: PYREXIA
     Route: 054
     Dates: start: 20050227, end: 20050227
  4. ACETAMINOPHEN [Concomitant]
     Route: 048
     Dates: start: 20050226, end: 20050228

REACTIONS (7)
  - ABDOMINAL PAIN [None]
  - DEHYDRATION [None]
  - DIARRHOEA [None]
  - NEPHROTIC SYNDROME [None]
  - RENAL FAILURE ACUTE [None]
  - SWELLING FACE [None]
  - VOMITING [None]
